FAERS Safety Report 10240009 (Version 2)
Quarter: 2015Q1

REPORT INFORMATION
  Report Type: Spontaneous
  Country: GB (occurrence: GB)
  Receive Date: 20140616
  Receipt Date: 20140616
  Transmission Date: 20150720
  Serious: Yes (Disabling)
  Sender: FDA-Public Use
  Company Number: GB-MYLANLABS-2014S1013328

PATIENT
  Age: 28 Year
  Sex: Female
  Weight: 60.9 kg

DRUGS (2)
  1. VENLAFAXINE [Suspect]
     Active Substance: VENLAFAXINE HYDROCHLORIDE
     Dates: start: 20140501
  2. ETONOGESTREL [Concomitant]
     Active Substance: ETONOGESTREL
     Dates: start: 20140227

REACTIONS (4)
  - Headache [Unknown]
  - Feeling drunk [Unknown]
  - Burning sensation [Recovered/Resolved]
  - Asthenia [Unknown]

NARRATIVE: CASE EVENT DATE: 20140523
